FAERS Safety Report 8291869-1 (Version None)
Quarter: 2012Q2

REPORT INFORMATION
  Report Type: 
  Country: None (occurrence: None)
  Receive Date: 20120417
  Receipt Date: 20110718
  Transmission Date: 20120825
  Serious: No
  Sender: FDA-Public Use
  Company Number: US-ASTRAZENECA-2011SE42985

PATIENT
  Age: 58 Year
  Sex: Female
  Weight: 55.8 kg

DRUGS (30)
  1. SEROQUEL [Suspect]
     Route: 048
  2. SEROQUEL [Suspect]
     Route: 048
     Dates: start: 20100101
  3. SEROQUEL [Suspect]
     Route: 048
  4. SEROQUEL [Suspect]
     Dosage: 200 MG AT NIGHT THAN CHANGED IT TO THE AM
     Route: 048
     Dates: start: 20110501
  5. SEROQUEL [Suspect]
     Route: 048
  6. SEROQUEL [Suspect]
     Indication: BIPOLAR DISORDER
     Route: 048
     Dates: start: 20060101
  7. SEROQUEL [Suspect]
     Route: 048
  8. SEROQUEL [Suspect]
     Route: 048
  9. SEROQUEL [Suspect]
     Route: 048
     Dates: start: 20100101
  10. SONATA [Concomitant]
  11. ZOLOFT [Concomitant]
  12. SEROQUEL [Suspect]
     Indication: MAJOR DEPRESSION
     Route: 048
     Dates: start: 20060101
  13. SEROQUEL [Suspect]
     Route: 048
  14. SEROQUEL [Suspect]
     Route: 048
  15. SEROQUEL [Suspect]
     Route: 048
  16. SEROQUEL [Suspect]
     Dosage: 200 MG AT NIGHT THAN CHANGED IT TO THE AM
     Route: 048
     Dates: start: 20110501
  17. ADDERALL 5 [Concomitant]
  18. NEXIUM [Suspect]
     Route: 048
     Dates: start: 20100101
  19. SEROQUEL [Suspect]
     Route: 048
  20. SEROQUEL [Suspect]
     Route: 048
  21. SEROQUEL [Suspect]
     Route: 048
  22. SEROQUEL [Suspect]
     Route: 048
  23. METFORMIN HCL [Concomitant]
     Indication: EATING DISORDER
     Dates: start: 20100101
  24. SEROQUEL [Suspect]
     Route: 048
  25. SEROQUEL [Suspect]
     Dosage: 200 MG AT NIGHT THAN CHANGED IT TO THE AM
     Route: 048
     Dates: start: 20110501
  26. SEROQUEL [Suspect]
     Route: 048
  27. SEROQUEL [Suspect]
     Route: 048
  28. KLONOPIN [Concomitant]
  29. SEROQUEL [Suspect]
     Indication: SCHIZOAFFECTIVE DISORDER
     Route: 048
     Dates: start: 20060101
  30. SEROQUEL [Suspect]
     Route: 048
     Dates: start: 20100101

REACTIONS (13)
  - COORDINATION ABNORMAL [None]
  - IMPAIRED GASTRIC EMPTYING [None]
  - EATING DISORDER [None]
  - ENURESIS [None]
  - INSOMNIA [None]
  - MICTURITION URGENCY [None]
  - ABDOMINAL DISCOMFORT [None]
  - NOCTURIA [None]
  - IMPAIRED DRIVING ABILITY [None]
  - DEHYDRATION [None]
  - HANGOVER [None]
  - WEIGHT INCREASED [None]
  - NAUSEA [None]
